FAERS Safety Report 4349535-0 (Version None)
Quarter: 2004Q2

REPORT INFORMATION
  Report Type: 
  Country: None (occurrence: None)
  Receive Date: 20040428
  Receipt Date: 20040402
  Transmission Date: 20050107
  Serious: Yes (Hospitalization)
  Sender: FDA-Public Use
  Company Number: JP-MERCK-0404USA00835

PATIENT
  Age: 54 Year
  Sex: Male

DRUGS (3)
  1. PEPCID RPD [Suspect]
     Indication: PROPHYLAXIS
     Route: 048
     Dates: start: 20030701, end: 20040328
  2. HYDREA [Concomitant]
     Route: 048
     Dates: start: 20030701, end: 20040131
  3. KELNAC [Concomitant]
     Route: 048
     Dates: start: 20030701, end: 20040328

REACTIONS (8)
  - CHRONIC FATIGUE SYNDROME [None]
  - FATIGUE [None]
  - MONONEURITIS [None]
  - MUSCULAR WEAKNESS [None]
  - MYALGIA [None]
  - NASOPHARYNGITIS [None]
  - PYREXIA [None]
  - THROMBOCYTHAEMIA [None]
